FAERS Safety Report 4437084-0 (Version None)
Quarter: 2004Q3

REPORT INFORMATION
  Report Type: 
  Country: None (occurrence: None)
  Receive Date: 20040827
  Receipt Date: 20040814
  Transmission Date: 20050211
  Serious: Yes (Other)
  Sender: FDA-Public Use
  Company Number: 2004057241

PATIENT
  Sex: Male

DRUGS (6)
  1. NEURONTIN [Suspect]
     Indication: ILL-DEFINED DISORDER
  2. IBUPROFEN [Suspect]
     Indication: ILL-DEFINED DISORDER
  3. ASPIRIN [Suspect]
     Indication: ILL-DEFINED DISORDER
  4. NAPROXEN SODIUM [Suspect]
     Indication: ILL-DEFINED DISORDER
  5. VICODIN [Suspect]
     Indication: ILL-DEFINED DISORDER
  6. CODEINE (CODEINE) [Suspect]
     Indication: ILL-DEFINED DISORDER

REACTIONS (4)
  - DRUG INEFFECTIVE [None]
  - HYPOAESTHESIA [None]
  - INTERVERTEBRAL DISC COMPRESSION [None]
  - SPINAL DEFORMITY [None]
